FAERS Safety Report 16070144 (Version 5)
Quarter: 2020Q3

REPORT INFORMATION
  Report Type: Spontaneous
  Country: FR (occurrence: FR)
  Receive Date: 20190314
  Receipt Date: 20200828
  Transmission Date: 20201102
  Serious: Yes (Other)
  Sender: FDA-Public Use
  Company Number: FR-ACCORD-112328

PATIENT
  Age: 4 Day
  Weight: 2.03 kg

DRUGS (17)
  1. DACARBAZINE. [Interacting]
     Active Substance: DACARBAZINE
     Indication: NON-HODGKIN^S LYMPHOMA STAGE II
     Dosage: AT DAY 1 AND 15 OF A 28?DAY CYCLE,
     Route: 064
  2. ENOXAPARIN/ENOXAPARIN SODIUM [Concomitant]
     Active Substance: ENOXAPARIN\ENOXAPARIN SODIUM
     Dosage: 4000 UI TWICE A DAY
     Route: 064
  3. DEXAMETHASONE. [Concomitant]
     Active Substance: DEXAMETHASONE
     Indication: VOMITING
     Route: 064
  4. PREDNISONE/PREDNISONE ACETATE [Concomitant]
     Active Substance: PREDNISONE ACETATE
     Dosage: 80 MILLIGRAM, QD
     Route: 064
  5. DOXORUBICIN [Interacting]
     Active Substance: DOXORUBICIN
     Indication: NON-HODGKIN^S LYMPHOMA STAGE II
     Dosage: AT DAY 1 AND 15 OF A 28?DAY CYCLE
     Route: 064
  6. PREDNISONE/PREDNISONE ACETATE [Concomitant]
     Active Substance: PREDNISONE ACETATE
     Dosage: 40 MG PER DAY WEEK AFTER THE FIRST ABVD
     Route: 064
     Dates: start: 201711
  7. VALACYCLOVIR [Concomitant]
     Active Substance: VALACYCLOVIR HYDROCHLORIDE
     Route: 064
     Dates: start: 2017
  8. ONDANSETRON [Suspect]
     Active Substance: ONDANSETRON
     Indication: PROPHYLAXIS
     Route: 064
  9. VINBLASTINE [Interacting]
     Active Substance: VINBLASTINE
     Indication: NON-HODGKIN^S LYMPHOMA STAGE II
     Dosage: AT DAY 1 AND 15 OF A 28?DAY CYCLE
     Route: 064
  10. VINBLASTINE [Interacting]
     Active Substance: VINBLASTINE
     Indication: NON-HODGKIN^S LYMPHOMA STAGE II
     Dosage: AT DAY 1 AND 15 OF A 28?DAY CYCLE
     Route: 064
     Dates: start: 201711
  11. BLEOMYCIN [Interacting]
     Active Substance: BLEOMYCIN SULFATE
     Indication: NON-HODGKIN^S LYMPHOMA STAGE II
     Dosage: AT DAY 1 AND 15 OF 28 DAY CYCLE
     Route: 064
  12. DACARBAZINE. [Interacting]
     Active Substance: DACARBAZINE
     Indication: NON-HODGKIN^S LYMPHOMA STAGE II
     Dosage: AT DAY 1 AND 15 OF A 28?DAY CYCLE
     Route: 064
  13. DOXORUBICIN [Interacting]
     Active Substance: DOXORUBICIN
     Indication: NON-HODGKIN^S LYMPHOMA STAGE II
     Dosage: AT DAY 1 AND 15 OF A 28?DAY CYCLE
     Route: 064
     Dates: start: 20171108
  14. LANSOPRAZOLE. [Concomitant]
     Active Substance: LANSOPRAZOLE
     Route: 064
     Dates: start: 2017
  15. BLEOMYCIN [Interacting]
     Active Substance: BLEOMYCIN SULFATE
     Indication: NON-HODGKIN^S LYMPHOMA STAGE II
     Dosage: AT DAY 1 AND 15 OF 28 DAY CYCLE
     Route: 064
     Dates: start: 20171108
  16. DEXAMETHASONE. [Concomitant]
     Active Substance: DEXAMETHASONE
     Indication: VOMITING
     Route: 064
     Dates: start: 20171108
  17. ONDANSETRON [Interacting]
     Active Substance: ONDANSETRON
     Indication: PROPHYLAXIS
     Route: 064
     Dates: start: 20171108, end: 201711

REACTIONS (3)
  - Foetal exposure during pregnancy [Unknown]
  - Cardiac dysfunction [Recovered/Resolved]
  - Drug interaction [Unknown]
